FAERS Safety Report 6424853-0 (Version None)
Quarter: 2009Q4

REPORT INFORMATION
  Report Type: 
  Country: None (occurrence: None)
  Receive Date: 20091029
  Receipt Date: 20091015
  Transmission Date: 20100525
  Serious: Yes (Hospitalization)
  Sender: FDA-Public Use
  Company Number: 20090479

PATIENT
  Age: 10 Year
  Sex: Male

DRUGS (3)
  1. CEFTRIAXONE [Suspect]
     Indication: SUBCUTANEOUS ABSCESS
     Dosage: 1 G TWICE DAILY INTRAVENOUS
     Route: 042
  2. CEPHALEXIN [Concomitant]
  3. CLINDAMYCIN [Concomitant]

REACTIONS (14)
  - ANURIA [None]
  - HAEMOGLOBIN DECREASED [None]
  - HAEMOLYSIS [None]
  - HEART RATE INCREASED [None]
  - MENTAL STATUS CHANGES [None]
  - PERITONEAL DIALYSIS [None]
  - PRURITUS GENERALISED [None]
  - RASH MACULO-PAPULAR [None]
  - RENAL FAILURE ACUTE [None]
  - RENAL TUBULAR NECROSIS [None]
  - SKIN INFECTION [None]
  - SOMNOLENCE [None]
  - SWELLING FACE [None]
  - URINARY CASTS PRESENT [None]
